FAERS Safety Report 22098606 (Version 2)
Quarter: 2023Q2

REPORT INFORMATION
  Report Type: Spontaneous
  Country: DE (occurrence: DE)
  Receive Date: 20230315
  Receipt Date: 20230405
  Transmission Date: 20230721
  Serious: Yes (Life-Threatening, Hospitalization, Other)
  Sender: FDA-Public Use
  Company Number: DE-Merck Healthcare KGaA-9388270

PATIENT
  Age: 40 Year
  Sex: Female
  Weight: 78 kg

DRUGS (4)
  1. MAVENCLAD [Suspect]
     Active Substance: CLADRIBINE
     Indication: Multiple sclerosis
     Dosage: FIRST WEEK THERAPY
     Route: 048
     Dates: start: 20230208, end: 20230212
  2. CHOLECALCIFEROL [Concomitant]
     Active Substance: CHOLECALCIFEROL
     Indication: Vitamin D deficiency
     Dosage: DOSE 20 (UNIT NOT PROVIDED)
     Route: 048
     Dates: start: 20200603
  3. MICROGYNON [ETHINYLESTRADIOL;FERROUS FUMARATE;LEVONORGESTREL] [Concomitant]
     Indication: Contraception
     Dates: end: 20230303
  4. VITAMIN B12 [Concomitant]
     Active Substance: CYANOCOBALAMIN
     Indication: Vitamin B12 deficiency
     Route: 058

REACTIONS (1)
  - Drug-induced liver injury [Recovering/Resolving]

NARRATIVE: CASE EVENT DATE: 20230303
